FAERS Safety Report 5808911-7 (Version None)
Quarter: 2008Q3

REPORT INFORMATION
  Report Type: 
  Country: None (occurrence: None)
  Receive Date: 20080714
  Receipt Date: 20080703
  Transmission Date: 20090109
  Serious: Yes (Hospitalization)
  Sender: FDA-Public Use
  Company Number: US-MERCK-0705USA05346

PATIENT
  Age: 46 Year
  Sex: Female

DRUGS (1)
  1. FOSAMAX [Suspect]
     Indication: OSTEOPOROSIS
     Route: 048
     Dates: start: 20000101, end: 20060301

REACTIONS (17)
  - ADRENAL DISORDER [None]
  - BREAST DISORDER [None]
  - CARDIAC DISORDER [None]
  - CARDIAC MURMUR [None]
  - CHRONIC OBSTRUCTIVE PULMONARY DISEASE [None]
  - HYPERTENSION [None]
  - LUNG DISORDER [None]
  - ORAL PAIN [None]
  - PAIN IN JAW [None]
  - PERIODONTAL DISEASE [None]
  - RAYNAUD'S PHENOMENON [None]
  - RESORPTION BONE INCREASED [None]
  - SWELLING [None]
  - TEMPOROMANDIBULAR JOINT SYNDROME [None]
  - THINKING ABNORMAL [None]
  - TRISMUS [None]
  - UPPER LIMB FRACTURE [None]
